FAERS Safety Report 10069900 (Version 1)
Quarter: 2014Q2

REPORT INFORMATION
  Report Type: Report from Study
  Country: PH (occurrence: PH)
  Receive Date: 20140410
  Receipt Date: 20140410
  Transmission Date: 20141212
  Serious: Yes (Other)
  Sender: FDA-Public Use
  Company Number: PH-JNJFOC-20140400170

PATIENT
  Sex: Male

DRUGS (1)
  1. ZYTIGA [Suspect]
     Indication: PROSTATE CANCER
     Route: 048

REACTIONS (5)
  - Abdominal symptom [Unknown]
  - Ulcer [Unknown]
  - Gynaecomastia [Unknown]
  - Nipple pain [Unknown]
  - Loss of libido [Unknown]
